FAERS Safety Report 13041900 (Version 1)
Quarter: 2016Q4

REPORT INFORMATION
  Report Type: Spontaneous
  Country: US (occurrence: US)
  Receive Date: 20161219
  Receipt Date: 20161219
  Transmission Date: 20170207
  Serious: No
  Sender: FDA-Public Use
  Company Number: US-ROCHE-1096613

PATIENT
  Sex: Male

DRUGS (1)
  1. ZELBORAF [Suspect]
     Active Substance: VEMURAFENIB
     Indication: PRODUCT USED FOR UNKNOWN INDICATION

REACTIONS (10)
  - Pain [Unknown]
  - Rash erythematous [Unknown]
  - Peripheral swelling [Unknown]
  - Rash [Recovered/Resolved]
  - Acne [Unknown]
  - Pruritus [Unknown]
  - Chills [Unknown]
  - Oedema [Unknown]
  - Alopecia [Unknown]
  - Arthralgia [Unknown]
